FAERS Safety Report 20643429 (Version 2)
Quarter: 2022Q2

REPORT INFORMATION
  Report Type: Spontaneous
  Country: US (occurrence: US)
  Receive Date: 20220328
  Receipt Date: 20220414
  Transmission Date: 20220721
  Serious: Yes (Hospitalization)
  Sender: FDA-Public Use
  Company Number: US-APOTEX-2022AP005173

PATIENT
  Age: 55 Year
  Sex: Male

DRUGS (13)
  1. ZYPREXA [Suspect]
     Active Substance: OLANZAPINE
     Indication: Product used for unknown indication
     Dosage: 2.5 MILLIGRAM, BID
     Route: 048
  2. CATAPRES [Suspect]
     Active Substance: CLONIDINE HYDROCHLORIDE
     Indication: Agitation
     Dosage: 0.1 MILLIGRAM, BID
     Route: 048
  3. CATAPRES [Suspect]
     Active Substance: CLONIDINE HYDROCHLORIDE
     Dosage: 0.2 MILLIGRAM, BID
     Route: 048
  4. CELEXA [Suspect]
     Active Substance: CITALOPRAM HYDROBROMIDE
     Indication: Agitation
     Dosage: 20 MILLIGRAM, Q.H.S.
     Route: 048
  5. QUETIAPINE [Suspect]
     Active Substance: QUETIAPINE
     Indication: Product used for unknown indication
     Dosage: UNK
     Route: 065
  6. KETAMINE [Suspect]
     Active Substance: KETAMINE
     Indication: Product used for unknown indication
     Dosage: UNK
     Route: 065
  7. LORAZEPAM [Concomitant]
     Active Substance: LORAZEPAM
     Indication: Agitation
     Dosage: UNK, PRN
     Route: 065
  8. TRAZODONE [Concomitant]
     Active Substance: TRAZODONE HYDROCHLORIDE
     Indication: Product used for unknown indication
     Dosage: UNK
     Route: 065
  9. MIRTAZAPINE [Concomitant]
     Active Substance: MIRTAZAPINE
     Indication: Product used for unknown indication
     Dosage: UNK
     Route: 065
  10. PRAZOSIN [Concomitant]
     Active Substance: PRAZOSIN
     Indication: Product used for unknown indication
     Dosage: 1 MILLIGRAM NIGHTLY
     Route: 065
  11. DEXTROMETHORPHAN HYDROBROMIDE\QUINIDINE SULFATE [Concomitant]
     Active Substance: DEXTROMETHORPHAN HYDROBROMIDE\QUINIDINE SULFATE
     Indication: Product used for unknown indication
     Dosage: UNK
     Route: 065
  12. GALANTAMINE [Concomitant]
     Active Substance: GALANTAMINE
     Indication: Product used for unknown indication
     Dosage: UNK
     Route: 065
  13. MELATONIN [Concomitant]
     Active Substance: MELATONIN
     Indication: Product used for unknown indication
     Dosage: UNK
     Route: 065

REACTIONS (6)
  - Paradoxical drug reaction [Recovered/Resolved]
  - Aggression [Recovered/Resolved]
  - Akathisia [Recovered/Resolved]
  - Hypotension [Recovered/Resolved]
  - Drug intolerance [Recovered/Resolved]
  - Off label use [Unknown]
